FAERS Safety Report 8205937-3 (Version None)
Quarter: 2012Q1

REPORT INFORMATION
  Report Type: 
  Country: None (occurrence: None)
  Receive Date: 20120313
  Receipt Date: 20120306
  Transmission Date: 20120608
  Serious: Yes (Hospitalization)
  Sender: FDA-Public Use
  Company Number: US-TEVA-326672USA

PATIENT
  Age: 59 Year
  Sex: Male
  Weight: 111.23 kg

DRUGS (9)
  1. BYETTA [Concomitant]
     Indication: TYPE 2 DIABETES MELLITUS
     Dosage: 20 MILLIGRAM;
  2. TEKTURNA [Concomitant]
  3. OLMESARTAN MEDOXOMIL [Concomitant]
     Indication: HYPERTENSION
     Dosage: 40 MILLIGRAM;
  4. LISINOPRIL [Concomitant]
     Indication: HYPERTENSION
     Dosage: 20 MILLIGRAM;
  5. FUROSEMIDE [Concomitant]
     Indication: HYPERTENSION
     Dosage: 20 MILLIGRAM;
  6. METFORMIN HCL [Concomitant]
     Indication: TYPE 2 DIABETES MELLITUS
     Dosage: 500 MG IN THE AM AND 1500 MG IN THE PM
  7. PRAVASTATIN [Concomitant]
     Indication: BLOOD CHOLESTEROL INCREASED
     Dosage: 40 MILLIGRAM;
  8. GLYBURIDE [Concomitant]
     Indication: TYPE 2 DIABETES MELLITUS
     Dosage: 10 MILLIGRAM;
  9. ATENOLOL [Suspect]
     Indication: HYPERTENSION
     Dosage: 100 MILLIGRAM;

REACTIONS (2)
  - PNEUMONIA [None]
  - PROTEIN URINE PRESENT [None]
